FAERS Safety Report 23218878 (Version 1)
Quarter: 2023Q4

REPORT INFORMATION
  Report Type: Spontaneous
  Country: JP (occurrence: JP)
  Receive Date: 20231122
  Receipt Date: 20231122
  Transmission Date: 20240109
  Serious: Yes (Other)
  Sender: FDA-Public Use
  Company Number: JP-SUN PHARMACEUTICAL INDUSTRIES LTD-2023RR-419232

PATIENT
  Age: 34 Year
  Sex: Female

DRUGS (1)
  1. EPOPROSTENOL [Suspect]
     Active Substance: EPOPROSTENOL
     Indication: Essential hypertension
     Dosage: CONTINUOUS, UNK
     Route: 042

REACTIONS (3)
  - Respiratory failure [Unknown]
  - Goitre [Unknown]
  - Stenosis [Unknown]
